FAERS Safety Report 14125123 (Version 5)
Quarter: 2018Q1

REPORT INFORMATION
  Report Type: Report from Study
  Country: FR (occurrence: FR)
  Receive Date: 20171025
  Receipt Date: 20180307
  Transmission Date: 20180508
  Serious: Yes (Death)
  Sender: FDA-Public Use
  Company Number: FR-ROCHE-2011894

PATIENT
  Age: 65 Year
  Sex: Female

DRUGS (73)
  1. PERTUZUMAB. [Suspect]
     Active Substance: PERTUZUMAB
     Indication: HER-2 POSITIVE BREAST CANCER
     Dosage: LOADING DOSE?DOSE AS PER PROTOCOL: PARTICIPANTS WILL RECEIVE PERTUZUMAB 840 MILLIGRAMS (MG) IV ON DA
     Route: 042
     Dates: start: 20140107
  2. PERTUZUMAB. [Suspect]
     Active Substance: PERTUZUMAB
     Dosage: LAST DOSE PRIOR TO AE 11/JUL/2017
     Route: 042
  3. TRASTUZUMAB. [Suspect]
     Active Substance: TRASTUZUMAB
     Indication: HER-2 POSITIVE BREAST CANCER
     Dosage: DOSE AS PER PROTOCOL: PARTICIPANTS WILL RECEIVE TRASTUZUMAB 8 MILLIGRAMS PER KILOGRAM (MG/KG) IV ON
     Route: 042
     Dates: start: 20140107
  4. GRANOCYTE 34 [Concomitant]
     Active Substance: LENOGRASTIM
     Route: 065
     Dates: start: 20140830, end: 20140902
  5. GRANOCYTE 34 [Concomitant]
     Active Substance: LENOGRASTIM
     Route: 065
     Dates: start: 20141122, end: 20141125
  6. GRANOCYTE 34 [Concomitant]
     Active Substance: LENOGRASTIM
     Route: 065
     Dates: start: 20150822, end: 20150825
  7. GRANOCYTE 34 [Concomitant]
     Active Substance: LENOGRASTIM
     Route: 065
     Dates: start: 20151003, end: 20151006
  8. GRANOCYTE 34 [Concomitant]
     Active Substance: LENOGRASTIM
     Route: 065
     Dates: start: 20160319, end: 20160322
  9. GRANOCYTE 34 [Concomitant]
     Active Substance: LENOGRASTIM
     Route: 065
     Dates: start: 20160611, end: 20160614
  10. GRANOCYTE 34 [Concomitant]
     Active Substance: LENOGRASTIM
     Route: 065
     Dates: start: 20160903, end: 20160906
  11. GRANOCYTE 34 [Concomitant]
     Active Substance: LENOGRASTIM
     Route: 065
     Dates: start: 20140719, end: 20140722
  12. GRANOCYTE 34 [Concomitant]
     Active Substance: LENOGRASTIM
     Route: 065
     Dates: start: 20141213, end: 20141216
  13. GRANOCYTE 34 [Concomitant]
     Active Substance: LENOGRASTIM
     Route: 065
     Dates: start: 20150103, end: 20150106
  14. GRANOCYTE 34 [Concomitant]
     Active Substance: LENOGRASTIM
     Route: 065
     Dates: start: 20150124, end: 20150127
  15. GRANOCYTE 34 [Concomitant]
     Active Substance: LENOGRASTIM
     Route: 065
     Dates: start: 20150801, end: 20150804
  16. GRANOCYTE 34 [Concomitant]
     Active Substance: LENOGRASTIM
     Route: 065
     Dates: start: 20151114, end: 20151117
  17. GRANOCYTE 34 [Concomitant]
     Active Substance: LENOGRASTIM
     Route: 065
     Dates: start: 20160116, end: 20160119
  18. GRANOCYTE 34 [Concomitant]
     Active Substance: LENOGRASTIM
     Route: 065
     Dates: start: 20160813, end: 20160816
  19. GRANOCYTE 34 [Concomitant]
     Active Substance: LENOGRASTIM
     Route: 065
     Dates: start: 20170422, end: 20170425
  20. GRANOCYTE 34 [Concomitant]
     Active Substance: LENOGRASTIM
     Route: 065
     Dates: start: 20170509, end: 20170509
  21. SALBUTAMOL [Concomitant]
     Active Substance: ALBUTEROL
     Route: 065
     Dates: start: 1993
  22. ZYLORIC [Concomitant]
     Active Substance: ALLOPURINOL
     Route: 065
     Dates: start: 20150521, end: 20150924
  23. FUROSEMIDE. [Concomitant]
     Active Substance: FUROSEMIDE
     Route: 065
     Dates: start: 20170818, end: 20170818
  24. GRANOCYTE 34 [Concomitant]
     Active Substance: LENOGRASTIM
     Route: 065
     Dates: start: 20140315, end: 20140318
  25. GRANOCYTE 34 [Concomitant]
     Active Substance: LENOGRASTIM
     Route: 065
     Dates: start: 20140405, end: 20140408
  26. GRANOCYTE 34 [Concomitant]
     Active Substance: LENOGRASTIM
     Route: 065
     Dates: start: 20140426, end: 20140429
  27. GRANOCYTE 34 [Concomitant]
     Active Substance: LENOGRASTIM
     Route: 065
     Dates: start: 20140607, end: 20140610
  28. GRANOCYTE 34 [Concomitant]
     Active Substance: LENOGRASTIM
     Route: 065
     Dates: start: 20140628, end: 20140701
  29. GRANOCYTE 34 [Concomitant]
     Active Substance: LENOGRASTIM
     Route: 065
     Dates: start: 20170128, end: 20170131
  30. GRANOCYTE 34 [Concomitant]
     Active Substance: LENOGRASTIM
     Route: 065
     Dates: start: 20170311, end: 20170314
  31. ZYLORIC [Concomitant]
     Active Substance: ALLOPURINOL
     Route: 065
     Dates: start: 201611
  32. GRANOCYTE 34 [Concomitant]
     Active Substance: LENOGRASTIM
     Indication: PROPHYLAXIS
     Route: 065
     Dates: start: 20140111, end: 20140114
  33. GRANOCYTE 34 [Concomitant]
     Active Substance: LENOGRASTIM
     Route: 065
     Dates: start: 20140809, end: 20140812
  34. GRANOCYTE 34 [Concomitant]
     Active Substance: LENOGRASTIM
     Route: 065
     Dates: start: 20150620, end: 20150623
  35. GRANOCYTE 34 [Concomitant]
     Active Substance: LENOGRASTIM
     Route: 065
     Dates: start: 20151205, end: 20151208
  36. GRANOCYTE 34 [Concomitant]
     Active Substance: LENOGRASTIM
     Route: 065
     Dates: start: 20151226, end: 20151229
  37. GRANOCYTE 34 [Concomitant]
     Active Substance: LENOGRASTIM
     Route: 065
     Dates: start: 20160206, end: 20160209
  38. GRANOCYTE 34 [Concomitant]
     Active Substance: LENOGRASTIM
     Route: 065
     Dates: start: 20160923, end: 20160926
  39. GRANOCYTE 34 [Concomitant]
     Active Substance: LENOGRASTIM
     Route: 065
     Dates: start: 20161015, end: 20161018
  40. GRANOCYTE 34 [Concomitant]
     Active Substance: LENOGRASTIM
     Route: 065
     Dates: start: 20170401, end: 20170404
  41. GRANOCYTE 34 [Concomitant]
     Active Substance: LENOGRASTIM
     Route: 065
     Dates: start: 20140201, end: 20140204
  42. GRANOCYTE 34 [Concomitant]
     Active Substance: LENOGRASTIM
     Route: 065
     Dates: start: 20150328, end: 20150331
  43. GRANOCYTE 34 [Concomitant]
     Active Substance: LENOGRASTIM
     Route: 065
     Dates: start: 20160521, end: 20160524
  44. GRANOCYTE 34 [Concomitant]
     Active Substance: LENOGRASTIM
     Route: 065
     Dates: start: 20161106, end: 20161109
  45. GRANOCYTE 34 [Concomitant]
     Active Substance: LENOGRASTIM
     Route: 065
     Dates: start: 20170107, end: 20170110
  46. GRANOCYTE 34 [Concomitant]
     Active Substance: LENOGRASTIM
     Route: 065
     Dates: start: 20170715, end: 20170718
  47. FUROSEMIDE. [Concomitant]
     Active Substance: FUROSEMIDE
     Route: 065
     Dates: start: 20140418, end: 20140603
  48. FUROSEMIDE. [Concomitant]
     Active Substance: FUROSEMIDE
     Route: 065
     Dates: start: 20170817, end: 20170817
  49. GRANOCYTE 34 [Concomitant]
     Active Substance: LENOGRASTIM
     Route: 065
     Dates: start: 20141011, end: 20141014
  50. GRANOCYTE 34 [Concomitant]
     Active Substance: LENOGRASTIM
     Route: 065
     Dates: start: 20150307, end: 20150310
  51. GRANOCYTE 34 [Concomitant]
     Active Substance: LENOGRASTIM
     Route: 065
     Dates: start: 20150509, end: 20150512
  52. GRANOCYTE 34 [Concomitant]
     Active Substance: LENOGRASTIM
     Route: 065
     Dates: start: 20151024, end: 20151027
  53. GRANOCYTE 34 [Concomitant]
     Active Substance: LENOGRASTIM
     Route: 065
     Dates: start: 20160726, end: 20160726
  54. GRANOCYTE 34 [Concomitant]
     Active Substance: LENOGRASTIM
     Route: 065
     Dates: start: 20170218, end: 20170221
  55. FUROSEMIDE. [Concomitant]
     Active Substance: FUROSEMIDE
     Route: 065
     Dates: start: 20170819, end: 20171002
  56. GRANOCYTE 34 [Concomitant]
     Active Substance: LENOGRASTIM
     Route: 065
     Dates: start: 20141101, end: 20141104
  57. GRANOCYTE 34 [Concomitant]
     Active Substance: LENOGRASTIM
     Route: 065
     Dates: start: 20150418, end: 20150421
  58. GRANOCYTE 34 [Concomitant]
     Active Substance: LENOGRASTIM
     Route: 065
     Dates: start: 20150530, end: 20150602
  59. GRANOCYTE 34 [Concomitant]
     Active Substance: LENOGRASTIM
     Route: 065
     Dates: start: 20150711, end: 20150714
  60. GRANOCYTE 34 [Concomitant]
     Active Substance: LENOGRASTIM
     Route: 065
     Dates: start: 20150912, end: 20150916
  61. GRANOCYTE 34 [Concomitant]
     Active Substance: LENOGRASTIM
     Route: 065
     Dates: start: 20160408, end: 20160411
  62. GRANOCYTE 34 [Concomitant]
     Active Substance: LENOGRASTIM
     Route: 065
     Dates: start: 20160430, end: 20160503
  63. GRANOCYTE 34 [Concomitant]
     Active Substance: LENOGRASTIM
     Route: 065
     Dates: start: 20161217, end: 20161220
  64. TRASTUZUMAB. [Suspect]
     Active Substance: TRASTUZUMAB
     Dosage: DOSE AS PER PROTOCOL: PARTICIPANTS WILL RECEIVE TRASTUZUMAB 8 MILLIGRAMS PER KILOGRAM (MG/KG) IV ON
     Route: 042
  65. GRANOCYTE 34 [Concomitant]
     Active Substance: LENOGRASTIM
     Route: 065
     Dates: start: 20140222, end: 20140225
  66. GRANOCYTE 34 [Concomitant]
     Active Substance: LENOGRASTIM
     Route: 065
     Dates: start: 20140517, end: 20140520
  67. GRANOCYTE 34 [Concomitant]
     Active Substance: LENOGRASTIM
     Route: 065
     Dates: start: 20140920, end: 20140923
  68. GRANOCYTE 34 [Concomitant]
     Active Substance: LENOGRASTIM
     Route: 065
     Dates: start: 20150214, end: 20150217
  69. GRANOCYTE 34 [Concomitant]
     Active Substance: LENOGRASTIM
     Route: 065
     Dates: start: 20160227, end: 20160301
  70. GRANOCYTE 34 [Concomitant]
     Active Substance: LENOGRASTIM
     Route: 065
     Dates: start: 20160702, end: 20160705
  71. GRANOCYTE 34 [Concomitant]
     Active Substance: LENOGRASTIM
     Route: 065
     Dates: start: 20161126, end: 20161129
  72. GRANOCYTE 34 [Concomitant]
     Active Substance: LENOGRASTIM
     Route: 065
     Dates: start: 20170513, end: 20170516
  73. ATORVASTATINE [Concomitant]
     Active Substance: ATORVASTATIN
     Route: 065
     Dates: start: 1993

REACTIONS (1)
  - Right ventricular failure [Fatal]

NARRATIVE: CASE EVENT DATE: 20170817
